FAERS Safety Report 15558094 (Version 1)
Quarter: 2018Q4

REPORT INFORMATION
  Report Type: Spontaneous
  Country: US (occurrence: US)
  Receive Date: 20181027
  Receipt Date: 20181027
  Transmission Date: 20190205
  Serious: Yes (Other)
  Sender: FDA-Public Use
  Company Number: US-009507513-1810USA010226

PATIENT
  Age: 23 Year
  Sex: Female
  Weight: 81.63 kg

DRUGS (1)
  1. NEXPLANON [Suspect]
     Active Substance: ETONOGESTREL
     Indication: CONTRACEPTION
     Dosage: 1 DOSAGE FORM EVERY 3 YEARS, LEFT ARM
     Route: 059
     Dates: start: 201801

REACTIONS (2)
  - Device dislocation [Unknown]
  - Device kink [Unknown]

NARRATIVE: CASE EVENT DATE: 201810
